FAERS Safety Report 5085882-5 (Version None)
Quarter: 2006Q3

REPORT INFORMATION
  Report Type: 
  Country: None (occurrence: None)
  Receive Date: 20060817
  Receipt Date: 20060808
  Transmission Date: 20061208
  Serious: Yes (Other)
  Sender: FDA-Public Use
  Company Number: SUS1-2006-00526

PATIENT
  Age: 11 Year
  Sex: Female
  Weight: 26.3 kg

DRUGS (1)
  1. ADDERALL 10 [Suspect]
     Indication: ATTENTION DEFICIT/HYPERACTIVITY DISORDER
     Dosage: 10 MG, 1X/DAY:QD
     Dates: start: 20050601

REACTIONS (3)
  - ALOPECIA AREATA [None]
  - CRYSTAL URINE PRESENT [None]
  - EOSINOPHIL COUNT INCREASED [None]
